FAERS Safety Report 8294925-7 (Version None)
Quarter: 2012Q2

REPORT INFORMATION
  Report Type: 
  Country: None (occurrence: None)
  Receive Date: 20120418
  Receipt Date: 20120412
  Transmission Date: 20120825
  Serious: Yes (Hospitalization, Other)
  Sender: FDA-Public Use
  Company Number: US-BAYER-2011-074829

PATIENT
  Age: 14 Year
  Sex: Female
  Weight: 72.562 kg

DRUGS (3)
  1. PROAIR HFA [Concomitant]
     Indication: ASTHMA
  2. YAZ [Suspect]
     Indication: CONTRACEPTION
     Dosage: UNK
     Dates: start: 20100828, end: 20100923
  3. YASMIN [Suspect]
     Dosage: UNK
     Dates: start: 20100828, end: 20100923

REACTIONS (8)
  - THROMBOSIS [None]
  - EMOTIONAL DISTRESS [None]
  - DEEP VEIN THROMBOSIS [None]
  - FEAR [None]
  - ANXIETY [None]
  - PSYCHOLOGICAL TRAUMA [None]
  - INJURY [None]
  - PAIN [None]
